FAERS Safety Report 25427906 (Version 1)
Quarter: 2025Q2

REPORT INFORMATION
  Report Type: Report from Study
  Country: US (occurrence: US)
  Receive Date: 20250612
  Receipt Date: 20250612
  Transmission Date: 20250717
  Serious: Yes (Hospitalization, Other)
  Sender: EISAI
  Company Number: US-Eisai-EC-2025-190654

PATIENT
  Age: 88 Year
  Sex: Female
  Weight: 50 kg

DRUGS (12)
  1. LECANEMAB [Suspect]
     Active Substance: LECANEMAB
     Indication: Dementia Alzheimer^s type
     Dates: start: 20240423, end: 20240716
  2. ASPIRIN [Concomitant]
     Active Substance: ASPIRIN
     Indication: Prophylaxis
  3. ATORVASTATIN [Concomitant]
     Active Substance: ATORVASTATIN
  4. CINACALCET [Concomitant]
     Active Substance: CINACALCET
     Indication: Hyperparathyroidism
  5. DIGOXIN [Concomitant]
     Active Substance: DIGOXIN
  6. FOSAMAX [Concomitant]
     Active Substance: ALENDRONATE SODIUM
     Indication: Postmenopause
  7. LEVOTHYROXINE [Concomitant]
     Active Substance: LEVOTHYROXINE
     Indication: Hypothyroidism
  8. METOPROLOL [Concomitant]
     Active Substance: METOPROLOL
  9. BUPROPION [Concomitant]
     Active Substance: BUPROPION
     Dates: start: 202209
  10. FLECAINIDE [Concomitant]
     Active Substance: FLECAINIDE
     Dates: start: 2024
  11. CANDESARTAN [Concomitant]
     Active Substance: CANDESARTAN
     Dates: start: 202401
  12. MEMANTINE [Concomitant]
     Active Substance: MEMANTINE
     Indication: Amnesia
     Dates: start: 202404

REACTIONS (2)
  - Cervical vertebral fracture [Recovering/Resolving]
  - Fall [Recovering/Resolving]

NARRATIVE: CASE EVENT DATE: 20240717
